FAERS Safety Report 12235396 (Version 1)
Quarter: 2016Q2

REPORT INFORMATION
  Report Type: Spontaneous
  Country: FR (occurrence: FR)
  Receive Date: 20160404
  Receipt Date: 20160404
  Transmission Date: 20160815
  Serious: Yes (Hospitalization)
  Sender: FDA-Public Use
  Company Number: FR-TEVA-648683ISR

PATIENT
  Age: 57 Year
  Sex: Male

DRUGS (3)
  1. CISPLATINE TEVA 50 MG/ 50 ML [Suspect]
     Active Substance: CISPLATIN
     Indication: SQUAMOUS CELL CARCINOMA
     Dosage: SECOND COURSE
     Route: 041
     Dates: start: 20160315, end: 20160315
  2. CISPLATINE TEVA 10 MG/10 ML [Suspect]
     Active Substance: CISPLATIN
     Indication: SQUAMOUS CELL CARCINOMA
     Dosage: SECOND COURSE
     Route: 041
     Dates: start: 20160315, end: 20160315
  3. CISPLATINE TEVA 100 MG/100 ML [Suspect]
     Active Substance: CISPLATIN
     Indication: SQUAMOUS CELL CARCINOMA
     Dosage: SECOND COURSE
     Route: 041
     Dates: start: 20160315, end: 20160315

REACTIONS (4)
  - Oedema [Recovered/Resolved]
  - Erythrosis [Recovered/Resolved]
  - Pyrexia [Recovered/Resolved]
  - Rash maculo-papular [Recovered/Resolved]

NARRATIVE: CASE EVENT DATE: 20160315
